FAERS Safety Report 7210685-2 (Version None)
Quarter: 2011Q1

REPORT INFORMATION
  Report Type: 
  Country: None (occurrence: None)
  Receive Date: 20110105
  Receipt Date: 20101231
  Transmission Date: 20110831
  Serious: No
  Sender: FDA-Public Use
  Company Number: US-PFIZER INC-HQWYE332925JUL06

PATIENT
  Sex: Male
  Weight: 95.3 kg

DRUGS (8)
  1. CELECOXIB [Concomitant]
  2. LYRICA [Suspect]
     Indication: PAIN
     Dosage: 100 MG, 2X/DAY
     Route: 048
     Dates: start: 20060601
  3. NEXIUM [Concomitant]
  4. OXYCODONE [Concomitant]
  5. HYDROCODONE [Concomitant]
  6. EFFEXOR XR [Suspect]
     Indication: DEPRESSION
     Dosage: 75 MG, 1X/DAY
     Route: 048
     Dates: start: 20050101, end: 20060601
  7. MORPHINE [Concomitant]
  8. EFFEXOR XR [Suspect]
     Dosage: 150 MG, 1X/DAY
     Route: 048
     Dates: start: 20060601

REACTIONS (4)
  - UNEVALUABLE EVENT [None]
  - DRUG WITHDRAWAL SYNDROME [None]
  - ABNORMAL DREAMS [None]
  - NIGHTMARE [None]
